FAERS Safety Report 8241106-9 (Version None)
Quarter: 2012Q1

REPORT INFORMATION
  Report Type: 
  Country: None (occurrence: None)
  Receive Date: 20120328
  Receipt Date: 20120322
  Transmission Date: 20120608
  Serious: Yes (Hospitalization)
  Sender: FDA-Public Use
  Company Number: US-GLAXOSMITHKLINE-A0971390A

PATIENT
  Age: 44 Year
  Sex: Female

DRUGS (4)
  1. TRACLEER [Concomitant]
  2. COUMADIN [Concomitant]
  3. FUROSEMIDE [Concomitant]
  4. FLOLAN [Suspect]
     Indication: ATRIAL SEPTAL DEFECT
     Dates: start: 19990927

REACTIONS (2)
  - OFF LABEL USE [None]
  - PERICARDIAL EFFUSION [None]
